FAERS Safety Report 16561193 (Version 1)
Quarter: 2019Q3

REPORT INFORMATION
  Report Type: Spontaneous
  Country: US (occurrence: US)
  Receive Date: 20190711
  Receipt Date: 20190711
  Transmission Date: 20191004
  Serious: No
  Sender: FDA-Public Use
  Company Number: US-GILEAD-2019-0417792

PATIENT
  Sex: Male

DRUGS (6)
  1. LABETALOL HYDROCHLORIDE. [Concomitant]
     Active Substance: LABETALOL HYDROCHLORIDE
     Dosage: UNKNOWN
  2. FISH OIL [Concomitant]
     Active Substance: FISH OIL
     Dosage: UNKNOWN
  3. BETAMETHASONE DIPROPIONATE. [Concomitant]
     Active Substance: BETAMETHASONE DIPROPIONATE
     Dosage: UNKNOWN
  4. VITAMIN C + ROSEHIP [Concomitant]
     Dosage: UNKNOWN
  5. PROTOPIC [Concomitant]
     Active Substance: TACROLIMUS
     Dosage: UNKNOWN
  6. EPCLUSA [Suspect]
     Active Substance: SOFOSBUVIR\VELPATASVIR
     Indication: CHRONIC HEPATITIS C
     Dosage: 1 DOSAGE FORM, QD
     Route: 048
     Dates: start: 201905

REACTIONS (4)
  - Irritability [Unknown]
  - Fatigue [Unknown]
  - Flatulence [Unknown]
  - Bloody discharge [Unknown]
